FAERS Safety Report 19090970 (Version 1)
Quarter: 2021Q2

REPORT INFORMATION
  Report Type: Spontaneous
  Country: NL (occurrence: NL)
  Receive Date: 20210405
  Receipt Date: 20210405
  Transmission Date: 20210717
  Serious: Yes (Other)
  Sender: FDA-Public Use
  Company Number: NL-SUN PHARMACEUTICAL INDUSTRIES LTD-2021RR-288538

PATIENT
  Sex: Male
  Weight: 70 kg

DRUGS (11)
  1. TIOTROPIUM VERNEVELVLST 2,5UG/DO / SPIRIVA RESPIMAT INHOPL 2,5MCG/D... [Concomitant]
     Indication: PRODUCT USED FOR UNKNOWN INDICATION
     Dosage: ()
     Route: 065
  2. PREDNISOLON TABLET  5MG / BRAND NAME NOT SPECIFIEDPREDNISOLON TABLE... [Concomitant]
     Indication: PRODUCT USED FOR UNKNOWN INDICATION
     Dosage: ()
     Route: 065
  3. CLOPIDOGREL TABLET   75MG / GREPID TABLET FILMOMHULD 75MGGREPID TAB... [Concomitant]
     Indication: PRODUCT USED FOR UNKNOWN INDICATION
     Dosage: ()
     Route: 065
  4. CALCIUMCARB/COLECALC KAUWTB 1,25G/800IE (500MG CA) / TACAL D3 KAUWT... [Concomitant]
     Indication: PRODUCT USED FOR UNKNOWN INDICATION
     Dosage: ()
     Route: 065
  5. BECLOMETASON/FORMOTEROL AEROSOL 100/6UG/DO / FOSTER AEROSOL 100/6MC... [Concomitant]
     Indication: PRODUCT USED FOR UNKNOWN INDICATION
     Dosage: ()
     Route: 065
  6. TAPENTADOL TABLET MGA  50MG / PALEXIA RETARD TABLET MVA  50MGPALEXI... [Concomitant]
     Indication: PRODUCT USED FOR UNKNOWN INDICATION
     Dosage: ()
     Route: 065
  7. PARACETAMOL / BRAND NAME NOT SPECIFIEDPARACETAMOL [Concomitant]
     Indication: PRODUCT USED FOR UNKNOWN INDICATION
     Dosage: ()
     Route: 065
  8. ALENDRONIC ACID [Suspect]
     Active Substance: ALENDRONIC ACID
     Indication: PRODUCT USED FOR UNKNOWN INDICATION
     Dosage: 70 MILLIGRAM, WEEKLY, 1X PER WEEK 1 TABLET
     Route: 065
     Dates: start: 201112
  9. PREGABALINE CAPSULE 300MG / BRAND NAME NOT SPECIFIEDPREGABALINE CAP... [Concomitant]
     Indication: PRODUCT USED FOR UNKNOWN INDICATION
     Dosage: ()
     Route: 065
  10. ACICLOVIR OOGZALF 30MG/G / BRAND NAME NOT SPECIFIEDACICLOVIR OOGZAL... [Concomitant]
     Indication: PRODUCT USED FOR UNKNOWN INDICATION
     Dosage: ()
     Route: 065
  11. CARBOMEER GEL 10MG/G / CARBOMEERWATERGEL 1%CARBOMEERWATERGEL 1%CARB... [Concomitant]
     Indication: PRODUCT USED FOR UNKNOWN INDICATION
     Dosage: ()
     Route: 065

REACTIONS (1)
  - Complication associated with device [Not Recovered/Not Resolved]
